FAERS Safety Report 11330076 (Version 1)
Quarter: 2015Q3

REPORT INFORMATION
  Report Type: Spontaneous
  Country: US (occurrence: US)
  Receive Date: 20150803
  Receipt Date: 20150803
  Transmission Date: 20151125
  Serious: Yes (Other)
  Sender: FDA-Public Use
  Company Number: US-PFIZER INC-2015252839

PATIENT
  Age: 65 Year
  Sex: Male
  Weight: 86 kg

DRUGS (7)
  1. LYRICA [Suspect]
     Active Substance: PREGABALIN
     Indication: NEUROPATHY PERIPHERAL
     Dosage: 75 MG, 1X/DAY
     Dates: start: 20150725, end: 20150726
  2. VALIUM [Concomitant]
     Active Substance: DIAZEPAM
     Indication: ANXIETY
     Dosage: UNK
  3. ASACOL [Concomitant]
     Active Substance: MESALAMINE
     Indication: ABDOMINAL DISCOMFORT
     Dosage: UNK
  4. LYRICA [Suspect]
     Active Substance: PREGABALIN
     Dosage: 75 MG, 2X/DAY, (ONCE IN MORNING AND ONCE IN EVENING)
     Dates: start: 20150727
  5. LEXAPRO [Concomitant]
     Active Substance: ESCITALOPRAM OXALATE
     Dosage: UNK
  6. AMBIEN [Concomitant]
     Active Substance: ZOLPIDEM TARTRATE
     Indication: SLEEP DISORDER
     Dosage: UNK
  7. NEURONTIN [Suspect]
     Active Substance: GABAPENTIN
     Dosage: UNK

REACTIONS (7)
  - Walking disability [Unknown]
  - Muscle spasms [Unknown]
  - Discomfort [Unknown]
  - Muscle twitching [Unknown]
  - Paraesthesia [Unknown]
  - Anger [Unknown]
  - Anxiety [Unknown]
